FAERS Safety Report 25989248 (Version 1)
Quarter: 2025Q4

REPORT INFORMATION
  Report Type: Spontaneous
  Country: EU (occurrence: EU)
  Receive Date: 20251103
  Receipt Date: 20251103
  Transmission Date: 20260118
  Serious: Yes (Life-Threatening, Other)
  Sender: ASTELLAS
  Company Number: EU-ASTELLAS-2025-AER-060755

PATIENT
  Age: 36 Year
  Sex: Male
  Weight: 69 kg

DRUGS (1)
  1. CRESEMBA [Suspect]
     Active Substance: ISAVUCONAZONIUM SULFATE
     Indication: Infection prophylaxis
     Dosage: 200 MILLIGRAM, SINGLE
     Route: 042
     Dates: start: 20250920, end: 20250920

REACTIONS (2)
  - Anaphylactic shock [Recovered/Resolved]
  - Off label use [Unknown]

NARRATIVE: CASE EVENT DATE: 20250920
